FAERS Safety Report 20090866 (Version 1)
Quarter: 2021Q4

REPORT INFORMATION
  Report Type: Spontaneous
  Country: BR (occurrence: BR)
  Receive Date: 20211119
  Receipt Date: 20211119
  Transmission Date: 20220304
  Serious: Yes (Other)
  Sender: FDA-Public Use
  Company Number: BR-PFIZER INC-202101538541

PATIENT
  Age: 59 Year
  Sex: Female

DRUGS (1)
  1. ALDACTONE [Suspect]
     Active Substance: SPIRONOLACTONE
     Dosage: UNK

REACTIONS (4)
  - Cardiac failure [Unknown]
  - Nephrolithiasis [Unknown]
  - Hepatic cyst [Unknown]
  - Headache [Unknown]

NARRATIVE: CASE EVENT DATE: 20210101
